FAERS Safety Report 22099428 (Version 1)
Quarter: 2023Q1

REPORT INFORMATION
  Report Type: Spontaneous
  Country: SE (occurrence: SE)
  Receive Date: 20230315
  Receipt Date: 20230315
  Transmission Date: 20230417
  Serious: Yes (Other)
  Sender: FDA-Public Use
  Company Number: None

PATIENT
  Age: 50 Year
  Sex: Female

DRUGS (2)
  1. FLUOXETINE HYDROCHLORIDE [Suspect]
     Active Substance: FLUOXETINE HYDROCHLORIDE
     Indication: Anxiety
     Dosage: 20 MG, QD, 1 DAILY
     Route: 048
     Dates: start: 20220621, end: 20220729
  2. FLUOXETINE HYDROCHLORIDE [Suspect]
     Active Substance: FLUOXETINE HYDROCHLORIDE
     Indication: Depression

REACTIONS (6)
  - Haemorrhagic diathesis [Recovered/Resolved]
  - Dysphonia [Recovering/Resolving]
  - Laryngeal inflammation [Recovering/Resolving]
  - Contusion [Recovered/Resolved]
  - Vocal cord inflammation [Recovering/Resolving]
  - Rash [Recovered/Resolved]
